FAERS Safety Report 23061891 (Version 1)
Quarter: 2023Q4

REPORT INFORMATION
  Report Type: Spontaneous
  Country: FR (occurrence: FR)
  Receive Date: 20231013
  Receipt Date: 20231013
  Transmission Date: 20240110
  Serious: Yes (Hospitalization)
  Sender: FDA-Public Use
  Company Number: None

PATIENT
  Age: 95 Year
  Sex: Female

DRUGS (3)
  1. CAPECITABINE [Suspect]
     Active Substance: CAPECITABINE
     Dates: start: 202307
  2. HERCEPTIN [Suspect]
     Active Substance: TRASTUZUMAB
     Dates: start: 202007
  3. LETROZOLE [Suspect]
     Active Substance: LETROZOLE
     Dates: start: 202007

REACTIONS (2)
  - Arteriosclerosis coronary artery [Not Recovered/Not Resolved]
  - Angina pectoris [Recovered/Resolved]

NARRATIVE: CASE EVENT DATE: 20230803
